FAERS Safety Report 9035267 (Version 1)
Quarter: 2013Q1

REPORT INFORMATION
  Report Type: Report from Study
  Country: US (occurrence: US)
  Receive Date: 20130129
  Receipt Date: 20130129
  Transmission Date: 20140127
  Serious: No
  Sender: FDA-Public Use
  Company Number: US-ABBOTT-12P-163-0895073-00

PATIENT
  Age: 44 Year
  Sex: Female

DRUGS (7)
  1. HUMIRA 40 MG/0.8 ML PEN [Suspect]
     Indication: RHEUMATOID ARTHRITIS
     Dosage: WEEKLY
     Dates: start: 200712, end: 20111223
  2. MTX [Concomitant]
     Indication: ARTHRITIS
  3. PLAQUENIL [Concomitant]
     Indication: ARTHRITIS
  4. MOBIC [Concomitant]
     Indication: ARTHRITIS
  5. ULTRAM [Concomitant]
     Indication: PAIN
  6. TYLENOL [Concomitant]
     Indication: PAIN
  7. UNKNOWN MEDICATIONS [Concomitant]
     Indication: PRODUCT USED FOR UNKNOWN INDICATION

REACTIONS (1)
  - Cough [Not Recovered/Not Resolved]
